FAERS Safety Report 11981767 (Version 1)
Quarter: 2016Q1

REPORT INFORMATION
  Report Type: Spontaneous
  Country: US (occurrence: US)
  Receive Date: 20160131
  Receipt Date: 20160131
  Transmission Date: 20160526
  Serious: No
  Sender: FDA-Public Use
  Company Number: US-AMGEN-USASP2016008354

PATIENT
  Age: 64 Year
  Sex: Female

DRUGS (26)
  1. HYDROCODONE BITARTRATE AND ACETAMINOPHEN [Concomitant]
     Active Substance: ACETAMINOPHEN\HYDROCODONE BITARTRATE
  2. ONDANSETRON [Concomitant]
     Active Substance: ONDANSETRON
  3. ESTRADIOL. [Concomitant]
     Active Substance: ESTRADIOL
     Dosage: 0.5 MG, UNK
  4. ARMOUR THYROID [Concomitant]
     Active Substance: THYROID, PORCINE
  5. MOVIPREP                           /06224801/ [Concomitant]
  6. BUPROPION HCL [Concomitant]
     Active Substance: BUPROPION HYDROCHLORIDE
  7. CARISOPRODOL. [Concomitant]
     Active Substance: CARISOPRODOL
  8. LAMOTRIGINE. [Concomitant]
     Active Substance: LAMOTRIGINE
  9. FLUOXETINE HCL [Concomitant]
     Active Substance: FLUOXETINE HYDROCHLORIDE
  10. ESTRADIOL W/ESTRIOL/NORETHISTERONE ACETATE [Concomitant]
  11. ENBREL [Suspect]
     Active Substance: ETANERCEPT
     Indication: RHEUMATOID ARTHRITIS
     Dosage: 50 MG, QWK
     Route: 058
  12. PROGESTERONE. [Concomitant]
     Active Substance: PROGESTERONE
     Dosage: 100 MG, UNK
  13. CLONAZEPAM. [Concomitant]
     Active Substance: CLONAZEPAM
  14. METHYLPREDNISOLONE. [Concomitant]
     Active Substance: METHYLPREDNISOLONE
  15. BUTRANS [Concomitant]
     Active Substance: BUPRENORPHINE
  16. CYMBALTA [Concomitant]
     Active Substance: DULOXETINE HYDROCHLORIDE
  17. METRONIDAZOLE. [Concomitant]
     Active Substance: METRONIDAZOLE
  18. NITROSTAT [Concomitant]
     Active Substance: NITROGLYCERIN
     Dosage: 0.3 MG, UNK
  19. VOLTAREN                           /00372303/ [Concomitant]
  20. ADVAIR HFA [Concomitant]
     Active Substance: FLUTICASONE PROPIONATE\SALMETEROL XINAFOATE
  21. BENZOTROPINE [Concomitant]
     Active Substance: BENZTROPINE
  22. TRAZODONE HYDROCHLORIDE. [Concomitant]
     Active Substance: TRAZODONE HYDROCHLORIDE
  23. HYDROMORPHONE HCL [Concomitant]
     Active Substance: HYDROMORPHONE HYDROCHLORIDE
  24. PREDNISONE. [Concomitant]
     Active Substance: PREDNISONE
  25. ACYCLOVIR                          /00587301/ [Concomitant]
     Active Substance: ACYCLOVIR
  26. MECLIZINE HCL [Concomitant]

REACTIONS (1)
  - Drug ineffective [Unknown]
